FAERS Safety Report 5450298-6 (Version None)
Quarter: 2007Q3

REPORT INFORMATION
  Report Type: 
  Country: None (occurrence: None)
  Receive Date: 20070912
  Receipt Date: 20070904
  Transmission Date: 20080115
  Serious: Yes (Other)
  Sender: FDA-Public Use
  Company Number: BE-PFIZER INC-2007068819

PATIENT
  Sex: Female
  Weight: 115 kg

DRUGS (11)
  1. XANAX [Suspect]
     Dosage: DAILY DOSE:1MG
     Dates: start: 20020101, end: 20070101
  2. DAKAR [Suspect]
     Dosage: DAILY DOSE:15MG
     Route: 048
     Dates: start: 20020101, end: 20070802
  3. ETANERCEPT [Suspect]
     Dates: start: 20070101, end: 20070802
  4. ZANTAC 150 [Concomitant]
  5. CITALOPRAM HYDROBROMIDE [Concomitant]
  6. BISOPROLOL [Concomitant]
  7. YASMIN [Concomitant]
  8. ALL OTHER THERAPEUTIC PRODUCTS [Concomitant]
  9. DIHYDERGOT [Concomitant]
  10. DOCRANITI [Concomitant]
  11. LEVOTHYROXINE SODIUM [Concomitant]

REACTIONS (1)
  - DYSKINESIA [None]
